FAERS Safety Report 6639735-9 (Version None)
Quarter: 2010Q1

REPORT INFORMATION
  Report Type: 
  Country: None (occurrence: None)
  Receive Date: 20100318
  Receipt Date: 20100308
  Transmission Date: 20100710
  Serious: Yes (Other)
  Sender: FDA-Public Use
  Company Number: PHHY2010FI12695

PATIENT
  Sex: Male

DRUGS (1)
  1. DIOVAN [Suspect]
     Indication: BLOOD PRESSURE
     Dosage: 160 MG
     Dates: start: 20000101, end: 20100201

REACTIONS (4)
  - COUGH [None]
  - LARYNX IRRITATION [None]
  - PNEUMOCYSTIS JIROVECI PNEUMONIA [None]
  - RHINORRHOEA [None]
